FAERS Safety Report 5849413-1 (Version None)
Quarter: 2008Q3

REPORT INFORMATION
  Report Type: 
  Country: None (occurrence: None)
  Receive Date: 20080819
  Receipt Date: 20080806
  Transmission Date: 20090109
  Serious: Yes (Other)
  Sender: FDA-Public Use
  Company Number: US-BRISTOL-MYERS SQUIBB COMPANY-14300180

PATIENT
  Age: 77 Year
  Sex: Female

DRUGS (13)
  1. CYCLOPHOSPHAMIDE [Suspect]
     Indication: DIFFUSE LARGE B-CELL LYMPHOMA
     Route: 042
  2. DOXORUBICIN HCL [Suspect]
     Indication: DIFFUSE LARGE B-CELL LYMPHOMA
     Dosage: CYCLE ONE STARTED ON 14MAR08-2008, DOSE (30MG/M2)
     Route: 042
     Dates: start: 20080509, end: 20080509
  3. VINCRISTINE SULFATE [Suspect]
     Indication: DIFFUSE LARGE B-CELL LYMPHOMA
     Route: 042
  4. RITUXIMAB [Suspect]
     Indication: DIFFUSE LARGE B-CELL LYMPHOMA
     Route: 042
  5. PREDNISONE TAB [Suspect]
     Indication: DIFFUSE LARGE B-CELL LYMPHOMA
     Route: 048
  6. NEULASTA [Suspect]
     Indication: DIFFUSE LARGE B-CELL LYMPHOMA
     Route: 058
  7. CARVEDILOL [Concomitant]
  8. DAPTOMYCIN [Concomitant]
  9. DIOVAN [Concomitant]
  10. SULFASALAZINE [Concomitant]
  11. ZOLOFT [Concomitant]
  12. ZYRTEC [Concomitant]
  13. DYAZIDE [Concomitant]

REACTIONS (1)
  - CATHETER RELATED INFECTION [None]
